FAERS Safety Report 12960200 (Version 3)
Quarter: 2017Q2

REPORT INFORMATION
  Report Type: Spontaneous
  Country: JP (occurrence: JP)
  Receive Date: 20161121
  Receipt Date: 20170407
  Transmission Date: 20170830
  Serious: Yes (Hospitalization, Disabling, Other)
  Sender: FDA-Public Use
  Company Number: JP-NOVOPROD-515646

PATIENT
  Age: 61 Year
  Sex: Male

DRUGS (2)
  1. NOVORAPID [Suspect]
     Active Substance: INSULIN ASPART
     Indication: TYPE 1 DIABETES MELLITUS
     Dosage: UNK
     Route: 058
  2. TRESIBA CHU FLEXTOUCH [Suspect]
     Active Substance: INSULIN DEGLUDEC
     Indication: TYPE 1 DIABETES MELLITUS
     Dosage: UNK
     Route: 058

REACTIONS (4)
  - Hypoglycaemic coma [Recovering/Resolving]
  - Retrograde amnesia [Unknown]
  - Overdose [Unknown]
  - Hypoglycaemic coma [Recovered/Resolved with Sequelae]

NARRATIVE: CASE EVENT DATE: 20160115
